FAERS Safety Report 7829253 (Version 2)
Quarter: 2014Q2

REPORT INFORMATION
  Report Type: Spontaneous
  Country: US (occurrence: US)
  Receive Date: 20110225
  Receipt Date: 20140624
  Transmission Date: 20141212
  Serious: Yes (Hospitalization, Other)
  Sender: FDA-Public Use
  Company Number: US-ROCHE-735485

PATIENT
  Age: 17 Year
  Sex: Male
  Weight: 108.9 kg

DRUGS (4)
  1. ACCUTANE [Suspect]
     Indication: ACNE
     Route: 065
     Dates: start: 198905, end: 19920820
  2. ACCUTANE [Suspect]
     Route: 065
     Dates: start: 19900101, end: 19920101
  3. ACCUTANE [Suspect]
     Route: 065
     Dates: start: 19900814, end: 19910405
  4. ACCUTANE [Suspect]
     Route: 065

REACTIONS (5)
  - Hiatus hernia [Unknown]
  - Colitis ulcerative [Not Recovered/Not Resolved]
  - Gastrointestinal injury [Unknown]
  - Inflammatory bowel disease [Unknown]
  - Intestinal obstruction [Unknown]
